FAERS Safety Report 4326043-4 (Version None)
Quarter: 2004Q1

REPORT INFORMATION
  Report Type: 
  Country: None (occurrence: None)
  Receive Date: 20040323
  Receipt Date: 20040311
  Transmission Date: 20041129
  Serious: Yes (Other)
  Sender: FDA-Public Use
  Company Number: HQWYE776512MAR04

PATIENT
  Sex: Female

DRUGS (2)
  1. CORDARONE [Suspect]
     Dosage: ORAL
     Route: 048
  2. UNSPECIFIED CALCIUM CHANNEL BLOCKER [Concomitant]

REACTIONS (1)
  - SYSTEMIC LUPUS ERYTHEMATOSUS [None]
